FAERS Safety Report 7533002-7 (Version None)
Quarter: 2011Q2

REPORT INFORMATION
  Report Type: 
  Country: None (occurrence: None)
  Receive Date: 20110608
  Receipt Date: 20110601
  Transmission Date: 20111010
  Serious: Yes (Death, Other)
  Sender: FDA-Public Use
  Company Number: PT-GENZYME-CAMP-1001555

PATIENT
  Sex: Male

DRUGS (5)
  1. CALCINEURIN INHIBITOR [Concomitant]
     Indication: PROPHYLAXIS AGAINST GRAFT VERSUS HOST DISEASE
     Route: 065
  2. METHOTREXATE [Concomitant]
     Indication: PROPHYLAXIS AGAINST GRAFT VERSUS HOST DISEASE
     Route: 065
  3. MYCOPHENOLATE MEFETIL [Concomitant]
     Indication: PROPHYLAXIS AGAINST GRAFT VERSUS HOST DISEASE
  4. CAMPATH [Suspect]
     Indication: NON-HODGKIN'S LYMPHOMA
     Dosage: 20 MG, UNK
     Route: 065
     Dates: start: 20060120, end: 20060124
  5. CAMPATH [Suspect]
     Indication: BONE MARROW CONDITIONING REGIMEN

REACTIONS (2)
  - CYTOMEGALOVIRUS INFECTION [None]
  - ACUTE GRAFT VERSUS HOST DISEASE [None]
